FAERS Safety Report 18890315 (Version 2)
Quarter: 2021Q2

REPORT INFORMATION
  Report Type: Report from Study
  Country: AU (occurrence: AU)
  Receive Date: 20210214
  Receipt Date: 20210505
  Transmission Date: 20210717
  Serious: Yes (Other)
  Sender: FDA-Public Use
  Company Number: NVSC2020AU327084

PATIENT
  Age: 84 Year
  Sex: Female

DRUGS (1)
  1. BEOVU [Suspect]
     Active Substance: BROLUCIZUMAB-DBLL
     Indication: CHOROIDAL NEOVASCULARISATION
     Dosage: UNK
     Route: 031
     Dates: start: 20201118, end: 20201118

REACTIONS (7)
  - Retinal artery occlusion [Not Recovered/Not Resolved]
  - Photopsia [Not Recovered/Not Resolved]
  - Blindness transient [Not Recovered/Not Resolved]
  - Eye inflammation [Unknown]
  - Retinal vasculitis [Not Recovered/Not Resolved]
  - Vitreous floaters [Not Recovered/Not Resolved]
  - Product use in unapproved indication [Unknown]

NARRATIVE: CASE EVENT DATE: 20201207
